FAERS Safety Report 6358014-0 (Version None)
Quarter: 2009Q3

REPORT INFORMATION
  Report Type: 
  Country: None (occurrence: None)
  Receive Date: 20090911
  Receipt Date: 20090902
  Transmission Date: 20100115
  Serious: Yes (Other)
  Sender: FDA-Public Use
  Company Number: GXKR2009GB09842

PATIENT
  Age: 23 Year
  Sex: Female

DRUGS (3)
  1. SUMATRIPTAN (NGX) (SUMATRIPTAN) TABLET [Suspect]
     Indication: HEADACHE
     Dosage: 25 MG, BID, ORAL
     Route: 048
  2. DIPYRIDAMOLE [Suspect]
     Indication: ISCHAEMIC STROKE
     Dosage: 200 MG,
  3. PARACETAMOL (PARACETAMOL) [Concomitant]

REACTIONS (8)
  - EMOTIONAL DISTRESS [None]
  - GINGIVAL BLEEDING [None]
  - ISCHAEMIC STROKE [None]
  - MUSCULAR WEAKNESS [None]
  - NAUSEA [None]
  - PARAESTHESIA [None]
  - PYREXIA [None]
  - THROMBOCYTOPENIA [None]
